FAERS Safety Report 6228857-2 (Version None)
Quarter: 2009Q2

REPORT INFORMATION
  Report Type: 
  Country: None (occurrence: None)
  Receive Date: 20090615
  Receipt Date: 20080408
  Transmission Date: 20091009
  Serious: Yes (Other)
  Sender: FDA-Public Use
  Company Number: US-ASTRAZENECA-2006UW07908

PATIENT
  Age: 21424 Day
  Sex: Female
  Weight: 100.7 kg

DRUGS (17)
  1. SEROQUEL [Suspect]
     Indication: DEPRESSION
     Route: 048
     Dates: start: 20000901, end: 20060301
  2. SEROQUEL [Suspect]
     Indication: INSOMNIA
     Route: 048
     Dates: start: 20000901, end: 20060301
  3. SEROQUEL [Suspect]
     Dosage: 25 MG-100 MG
     Route: 048
     Dates: start: 20000926, end: 20060315
  4. SEROQUEL [Suspect]
     Dosage: 25 MG-100 MG
     Route: 048
     Dates: start: 20000926, end: 20060315
  5. PROZAC [Concomitant]
     Indication: BIPOLAR I DISORDER
     Dosage: 20 MG-80 MG
     Route: 048
     Dates: start: 19940213
  6. KLONOPIN [Concomitant]
     Dosage: 1 MG-4 MG
     Route: 048
     Dates: start: 19971209
  7. WELLBUTRIN [Concomitant]
     Dosage: 100 MG-150 MG
     Route: 048
     Dates: start: 20020604
  8. ACTOS [Concomitant]
     Route: 048
     Dates: start: 20020405
  9. PRINIVIL [Concomitant]
     Dates: start: 20030211
  10. CELEXA [Concomitant]
     Indication: BIPOLAR I DISORDER
     Dates: start: 19990415
  11. LIPITOR [Concomitant]
     Indication: HYPERCHOLESTEROLAEMIA
     Route: 048
     Dates: start: 20020405
  12. MECLIZINE [Concomitant]
     Dates: start: 20030211
  13. DESYREL [Concomitant]
     Dosage: 50-300 MG
     Route: 048
     Dates: start: 19971209
  14. TRILAFON [Concomitant]
     Dosage: 2-6 MG
     Route: 048
     Dates: start: 19980120
  15. CELEBREX [Concomitant]
     Dates: start: 20030211
  16. ZOCOR [Concomitant]
     Indication: HYPERCHOLESTEROLAEMIA
     Dosage: 10-20 MG
     Dates: start: 19980922
  17. GLUCOPHAGE XL [Concomitant]
     Route: 048
     Dates: start: 20020405

REACTIONS (2)
  - DIABETES MELLITUS [None]
  - DIABETIC NEUROPATHY [None]
